FAERS Safety Report 11888771 (Version 4)
Quarter: 2016Q4

REPORT INFORMATION
  Report Type: Report from Study
  Country: JP (occurrence: JP)
  Receive Date: 20160105
  Receipt Date: 20161129
  Transmission Date: 20170206
  Serious: Yes (Death)
  Sender: FDA-Public Use
  Company Number: JP-PFIZER INC-2015473744

PATIENT
  Age: 45 Year
  Sex: Female
  Weight: 36.4 kg

DRUGS (27)
  1. AZTREONAM. [Suspect]
     Active Substance: AZTREONAM
     Indication: CHOLECYSTITIS
     Dosage: UNK
     Route: 041
     Dates: start: 20151216
  2. KIDMIN /07401301/ [Concomitant]
     Dosage: UNK
     Route: 041
  3. ALDREB [Concomitant]
     Dosage: UNK
     Route: 041
  4. ONOACT [Concomitant]
     Active Substance: LANDIOLOL HYDROCHLORIDE
     Dosage: UNK
     Route: 041
  5. TEPRENONE [Concomitant]
     Active Substance: TEPRENONE
     Dosage: UNK
     Route: 048
  6. TAKEPRON OD [Concomitant]
     Active Substance: LANSOPRAZOLE
     Dosage: UNK
     Route: 048
  7. FENTANYL. [Concomitant]
     Active Substance: FENTANYL
     Dosage: UNK
     Route: 041
  8. TIGECYCLINE. [Suspect]
     Active Substance: TIGECYCLINE
     Indication: CHOLECYSTITIS
     Dosage: 100 MG, 1X/DAY
     Route: 041
     Dates: start: 20151214, end: 20151214
  9. TIGECYCLINE. [Suspect]
     Active Substance: TIGECYCLINE
     Dosage: 50 MG, 1X/DAY
     Route: 041
     Dates: start: 20151215, end: 20151215
  10. SODIUM PHOSPHATE [Concomitant]
     Active Substance: SODIUM PHOSPHATE
     Dosage: UNK
     Route: 041
  11. BOSMIN /00003901/ [Concomitant]
     Dosage: UNK
  12. DAIKENCHUTO [Concomitant]
     Active Substance: HERBALS
     Dosage: UNK
     Route: 048
  13. HICALIQ [Concomitant]
     Active Substance: CALCIUM GLUCONATE\DEXTROSE\MAGNESIUM SULFATE\POTASSIUM ACETATE\POTASSIUM PHOSPHATE, DIBASIC\ZINC SULFATE
     Dosage: UNK
     Route: 041
  14. HUMULIN R [Concomitant]
     Active Substance: INSULIN HUMAN
     Dosage: UNK
     Route: 041
  15. NEUART [Concomitant]
     Active Substance: ANTITHROMBIN III HUMAN
     Dosage: UNK
  16. MEROPEN /01250501/ [Suspect]
     Active Substance: MEROPENEM
     Indication: CHOLECYSTITIS
     Dosage: UNK
     Route: 041
  17. WARFARIN [Concomitant]
     Active Substance: WARFARIN
     Dosage: UNK
     Route: 048
  18. PRECEDEX [Concomitant]
     Active Substance: DEXMEDETOMIDINE HYDROCHLORIDE
     Dosage: UNK
  19. MUCODYNE [Concomitant]
     Active Substance: CARBOCYSTEINE
     Dosage: UNK
  20. LASIX [Concomitant]
     Active Substance: FUROSEMIDE
     Dosage: UNK
     Route: 048
  21. ALDACTONE A [Concomitant]
     Active Substance: SPIRONOLACTONE
     Dosage: UNK
     Route: 048
  22. URSO [Concomitant]
     Active Substance: URSODIOL
     Dosage: UNK
  23. COLISTIN SODIUM METHANESULFONATE [Suspect]
     Active Substance: COLISTIN A SODIUM METHANESULFONATE
     Indication: CHOLECYSTITIS
     Dosage: UNK
     Route: 041
     Dates: end: 20151216
  24. PANTOL /00178901/ [Concomitant]
     Dosage: UNK
     Route: 041
  25. MUCOSAL /00082801/ [Concomitant]
     Dosage: UNK
     Route: 048
  26. VITAJECT B [Concomitant]
     Dosage: UNK
     Route: 041
  27. INOVAN INJECTION 0.3% [Concomitant]
     Dosage: UNK
     Route: 041

REACTIONS (2)
  - Mitral valve disease [Fatal]
  - Condition aggravated [Fatal]

NARRATIVE: CASE EVENT DATE: 20151225
